FAERS Safety Report 7269342-9 (Version None)
Quarter: 2011Q1

REPORT INFORMATION
  Report Type: 
  Country: None (occurrence: None)
  Receive Date: 20110124
  Receipt Date: 20110107
  Transmission Date: 20110831
  Serious: Yes (Death)
  Sender: FDA-Public Use
  Company Number: DSA_44794_2011

PATIENT
  Sex: Female

DRUGS (1)
  1. DILTIAZEM HCL [Suspect]
     Indication: HYPERTENSION
     Dosage: (90 MG QD ORAL)
     Route: 048

REACTIONS (9)
  - CEREBROVASCULAR ACCIDENT [None]
  - PRESYNCOPE [None]
  - CARDIOTOXICITY [None]
  - CHOKING [None]
  - CARDIO-RESPIRATORY ARREST [None]
  - CARDIAC FAILURE ACUTE [None]
  - DRUG LEVEL INCREASED [None]
  - ASPIRATION [None]
  - BRADYCARDIA [None]
